FAERS Safety Report 9775942 (Version 1)
Quarter: 2013Q4

REPORT INFORMATION
  Report Type: Spontaneous
  Country: GB (occurrence: GB)
  Receive Date: 20131220
  Receipt Date: 20131220
  Transmission Date: 20140711
  Serious: Yes (Other)
  Sender: FDA-Public Use
  Company Number: GB-TEVA-450354ISR

PATIENT
  Age: 68 Year
  Sex: Female

DRUGS (5)
  1. WARFARIN [Suspect]
     Indication: DEEP VEIN THROMBOSIS
     Dosage: 4 MILLIGRAM DAILY;
     Route: 048
     Dates: start: 20130819
  2. LEVOTHYROXINE [Concomitant]
  3. CO-DYDRAMOL [Concomitant]
  4. VENTOLIN [Concomitant]
  5. NAPROXEN [Concomitant]

REACTIONS (2)
  - Chest pain [Not Recovered/Not Resolved]
  - Facial pain [Not Recovered/Not Resolved]
